FAERS Safety Report 6173559-4 (Version None)
Quarter: 2009Q2

REPORT INFORMATION
  Report Type: 
  Country: None (occurrence: None)
  Receive Date: 20090430
  Receipt Date: 20090428
  Transmission Date: 20091009
  Serious: Yes (Hospitalization)
  Sender: FDA-Public Use
  Company Number: B0572124A

PATIENT
  Sex: Female

DRUGS (2)
  1. AUGMENTIN '125' [Suspect]
     Indication: TONSILLITIS
     Dosage: 1G TWICE PER DAY
     Route: 048
     Dates: start: 20090403, end: 20090409
  2. SOLUPRED [Concomitant]
     Indication: TONSILLITIS
     Route: 048
     Dates: start: 20090403, end: 20090405

REACTIONS (4)
  - EOSINOPHIL COUNT INCREASED [None]
  - FACE OEDEMA [None]
  - PYREXIA [None]
  - URTICARIA [None]
